FAERS Safety Report 6520921-3 (Version None)
Quarter: 2009Q4

REPORT INFORMATION
  Report Type: 
  Country: None (occurrence: None)
  Receive Date: 20091229
  Receipt Date: 20091216
  Transmission Date: 20100525
  Serious: Yes (Death)
  Sender: FDA-Public Use
  Company Number: JP-AMGEN-US381520

PATIENT
  Age: 75 Year
  Sex: Female

DRUGS (2)
  1. ENBREL [Suspect]
     Indication: RHEUMATOID ARTHRITIS
     Dosage: 25MG/WEEK, LYOPHILIZED
     Route: 058
     Dates: start: 20080430
  2. ENBREL [Suspect]
     Dosage: 25MG/WEEK, SOLUTION FOR INJECTION, FROM AN UNKNOWN DATE TO 11-NOV-2009
     Route: 058
     Dates: end: 20091111

REACTIONS (1)
  - DROWNING [None]
